FAERS Safety Report 18470181 (Version 1)
Quarter: 2020Q4

REPORT INFORMATION
  Report Type: Spontaneous
  Country: US (occurrence: US)
  Receive Date: 20201105
  Receipt Date: 20201105
  Transmission Date: 20210114
  Serious: No
  Sender: FDA-Public Use
  Company Number: US-TEVA-2020-US-1844998

PATIENT
  Sex: Female

DRUGS (1)
  1. METHYLPHENIDATE HYDROCHLORIDE TEVA [Suspect]
     Active Substance: METHYLPHENIDATE HYDROCHLORIDE
     Indication: ATTENTION DEFICIT HYPERACTIVITY DISORDER
     Dosage: FORM OF ADMIN: EXTENDED-RELEASE
     Route: 065
     Dates: start: 20200508

REACTIONS (8)
  - Rebound effect [Unknown]
  - Psychiatric symptom [Unknown]
  - Anxiety [Unknown]
  - Disturbance in attention [Unknown]
  - Regressive behaviour [Unknown]
  - Psychomotor hyperactivity [Unknown]
  - Withdrawal syndrome [Unknown]
  - Anger [Unknown]

NARRATIVE: CASE EVENT DATE: 2020
